FAERS Safety Report 6262479-2 (Version None)
Quarter: 2009Q3

REPORT INFORMATION
  Report Type: 
  Country: None (occurrence: None)
  Receive Date: 20090709
  Receipt Date: 20090702
  Transmission Date: 20100115
  Serious: Yes (Other)
  Sender: FDA-Public Use
  Company Number: US-ASTRAZENECA-2008UW00631

PATIENT
  Sex: Female

DRUGS (1)
  1. ARIMIDEX [Suspect]
     Indication: BREAST CANCER FEMALE
     Route: 048

REACTIONS (5)
  - DEPRESSION [None]
  - HORMONE LEVEL ABNORMAL [None]
  - INTERVERTEBRAL DISC DISORDER [None]
  - OSTEOPOROSIS [None]
  - SUICIDAL IDEATION [None]
